FAERS Safety Report 5595664-3 (Version None)
Quarter: 2008Q1

REPORT INFORMATION
  Report Type: 
  Country: None (occurrence: None)
  Receive Date: 20080118
  Receipt Date: 20080110
  Transmission Date: 20080703
  Serious: Yes (Hospitalization)
  Sender: FDA-Public Use
  Company Number: SE-WYE-G00867408

PATIENT
  Sex: Female

DRUGS (6)
  1. TYGACIL [Suspect]
     Indication: BACTERIAL INFECTION
     Route: 042
     Dates: start: 20071102, end: 20071109
  2. TIPAROL [Suspect]
  3. PULMICORT [Suspect]
  4. VENTOLIN DISKUS [Suspect]
  5. ALVEDON [Suspect]
  6. BEHEPAN [Suspect]

REACTIONS (3)
  - ANAEMIA [None]
  - HYPOALBUMINAEMIA [None]
  - HYPOKALAEMIA [None]
